FAERS Safety Report 9456493 (Version 3)
Quarter: 2014Q1

REPORT INFORMATION
  Report Type: Spontaneous
  Country: CA (occurrence: CA)
  Receive Date: 20130813
  Receipt Date: 20140120
  Transmission Date: 20141002
  Serious: Yes (Death, Hospitalization)
  Sender: FDA-Public Use
  Company Number: CA-ROCHE-1261137

PATIENT
  Age: 81 Year
  Sex: Female

DRUGS (5)
  1. XOLAIR [Suspect]
     Indication: ASTHMA
     Route: 058
     Dates: start: 20121106, end: 20130815
  2. PREDNISONE [Concomitant]
     Route: 065
     Dates: start: 201307
  3. ADVAIR [Concomitant]
  4. SPIRIVA [Concomitant]
  5. SALBUTAMOL [Concomitant]

REACTIONS (4)
  - Death [Fatal]
  - Pneumonia [Unknown]
  - Tuberculosis [Unknown]
  - Nasopharyngitis [Unknown]
